FAERS Safety Report 17061798 (Version 6)
Quarter: 2020Q2

REPORT INFORMATION
  Report Type: Report from Study
  Country: US (occurrence: US)
  Receive Date: 20191121
  Receipt Date: 20200518
  Transmission Date: 20200713
  Serious: Yes (Hospitalization)
  Sender: FDA-Public Use
  Company Number: US-ACTELION-A-US2019-194519

PATIENT
  Sex: Female
  Weight: 80.27 kg

DRUGS (9)
  1. SILDENAFIL. [Concomitant]
     Active Substance: SILDENAFIL
  2. VELETRI [Suspect]
     Active Substance: EPOPROSTENOL
     Dosage: 11 NG/KG, PER MIN
     Route: 042
  3. VELETRI [Suspect]
     Active Substance: EPOPROSTENOL
     Dosage: 13.42 NG/KG, PER MIN
     Route: 042
  4. VELETRI [Suspect]
     Active Substance: EPOPROSTENOL
     Indication: PULMONARY ARTERIAL HYPERTENSION
     Dosage: 12.99 NG/KG, PER MIN
     Route: 042
  5. VELETRI [Suspect]
     Active Substance: EPOPROSTENOL
     Dosage: 7.31 NG/KG, PER MIN
     Route: 042
  6. AMBRISENTAN [Concomitant]
     Active Substance: AMBRISENTAN
  7. TYVASO [Concomitant]
     Active Substance: TREPROSTINIL
  8. VELETRI [Suspect]
     Active Substance: EPOPROSTENOL
     Dosage: 11.23 NG/KG, PER MIN
     Route: 042
  9. REMODULIN [Suspect]
     Active Substance: TREPROSTINIL
     Indication: PULMONARY ARTERIAL HYPERTENSION
     Route: 051

REACTIONS (17)
  - Catheter site infection [Unknown]
  - Catheter site discharge [Unknown]
  - Nausea [Unknown]
  - Walking distance test abnormal [Unknown]
  - Pain in jaw [Unknown]
  - Catheter management [Recovered/Resolved]
  - Abdominal pain [Unknown]
  - Catheter site pain [Unknown]
  - Dyspnoea [Unknown]
  - Pain [Unknown]
  - Headache [Unknown]
  - Diarrhoea [Unknown]
  - Therapy change [Recovered/Resolved]
  - Chest pain [Unknown]
  - Catheter site erythema [Unknown]
  - Application site odour [Unknown]
  - Blood culture positive [Unknown]
